FAERS Safety Report 17809225 (Version 1)
Quarter: 2020Q2

REPORT INFORMATION
  Report Type: Spontaneous
  Country: IT (occurrence: IT)
  Receive Date: 20200520
  Receipt Date: 20200520
  Transmission Date: 20200714
  Serious: Yes (Other)
  Sender: FDA-Public Use
  Company Number: IT-SAKK-2018SA154325AA

PATIENT
  Age: 84 Year
  Sex: Female

DRUGS (2)
  1. APIDRA [Suspect]
     Active Substance: INSULIN GLULISINE
     Indication: TYPE 2 DIABETES MELLITUS
     Dosage: 6 IU, QD
     Route: 058
     Dates: start: 20170101, end: 20171207
  2. ENAPREN [Concomitant]
     Active Substance: ENALAPRIL MALEATE
     Route: 065

REACTIONS (4)
  - Syncope [Recovering/Resolving]
  - Headache [Recovering/Resolving]
  - Hypoglycaemia [Recovering/Resolving]
  - Loss of consciousness [Recovering/Resolving]

NARRATIVE: CASE EVENT DATE: 20171207
